FAERS Safety Report 23178481 (Version 2)
Quarter: 2024Q1

REPORT INFORMATION
  Report Type: Spontaneous
  Country: US (occurrence: US)
  Receive Date: 20231113
  Receipt Date: 20240214
  Transmission Date: 20240409
  Serious: Yes (Other)
  Sender: FDA-Public Use
  Company Number: US-BAYER-2023A157400

PATIENT
  Age: 21 Year
  Sex: Male

DRUGS (3)
  1. JIVI [Suspect]
     Active Substance: DAMOCTOCOG ALFA PEGOL
     Indication: Factor VIII deficiency
     Dosage: 1000 UNK, 2-3 TIMES PER WEEK
     Route: 042
     Dates: start: 202306
  2. JIVI [Suspect]
     Active Substance: DAMOCTOCOG ALFA PEGOL
     Indication: Factor VIII deficiency
     Dosage: 2000 U, 2-3 TIMES PER WEEK
     Route: 042
     Dates: start: 202306
  3. JIVI [Suspect]
     Active Substance: DAMOCTOCOG ALFA PEGOL
     Indication: Factor VIII deficiency
     Dosage: 3000 UNITS ,

REACTIONS (2)
  - Haemorrhage [None]
  - Ligament sprain [None]

NARRATIVE: CASE EVENT DATE: 20231110
